FAERS Safety Report 4365825-X (Version None)
Quarter: 2004Q2

REPORT INFORMATION
  Report Type: 
  Country: None (occurrence: None)
  Receive Date: 20040521
  Receipt Date: 20040508
  Transmission Date: 20050107
  Serious: Yes (Hospitalization, Other)
  Sender: FDA-Public Use
  Company Number: ENT 2004-0092

PATIENT
  Age: 78 Year
  Sex: Female

DRUGS (5)
  1. ENTACAPONE (COMTESS) (ENTACAPONE) [Suspect]
     Indication: PARKINSON'S DISEASE
  2. PRAMIPEXOLE [Suspect]
     Dosage: 3 MG, 3 IN 1 D
  3. CARBIDOPA AND LEVODOPA [Concomitant]
  4. LEVODOPA-CARBIDOPA (CONTROLLED-RELEASE) [Concomitant]
  5. QUETIAPINE [Concomitant]

REACTIONS (3)
  - DRY THROAT [None]
  - HALLUCINATION, OLFACTORY [None]
  - HALLUCINATION, VISUAL [None]
